FAERS Safety Report 21165179 (Version 2)
Quarter: 2022Q3

REPORT INFORMATION
  Report Type: Spontaneous
  Country: CZ (occurrence: CZ)
  Receive Date: 20220803
  Receipt Date: 20220811
  Transmission Date: 20221027
  Serious: Yes (Life-Threatening, Hospitalization, Other)
  Sender: FDA-Public Use
  Company Number: CZ-VITABALANS-053-2022

PATIENT
  Age: 15 Year
  Sex: Female

DRUGS (2)
  1. SERTRALINE [Interacting]
     Active Substance: SERTRALINE HYDROCHLORIDE
     Indication: Product used for unknown indication
     Dosage: UNK
     Route: 065
  2. ACETAMINOPHEN [Suspect]
     Active Substance: ACETAMINOPHEN
     Indication: Product used for unknown indication
     Dosage: 40 TABLETS (STRENGTH UNKNOWN)
     Route: 065
     Dates: start: 202101

REACTIONS (3)
  - Drug interaction [Recovered/Resolved]
  - Intentional overdose [Recovered/Resolved]
  - Rhabdomyolysis [Unknown]
